FAERS Safety Report 9097399 (Version 1)
Quarter: 2013Q1

REPORT INFORMATION
  Report Type: Spontaneous
  Country: JP (occurrence: JP)
  Receive Date: 20130212
  Receipt Date: 20130212
  Transmission Date: 20140127
  Serious: Yes (Hospitalization)
  Sender: FDA-Public Use
  Company Number: JP-BRISTOL-MYERS SQUIBB COMPANY-17360272

PATIENT
  Age: 71 Year
  Sex: Female

DRUGS (5)
  1. METGLUCO [Suspect]
     Indication: DIABETES MELLITUS
     Dosage: DECREASED TO 500MG/DY AND 250MG/DAY
     Route: 048
  2. LIPITOR [Suspect]
     Route: 048
  3. DIART [Concomitant]
     Route: 048
  4. DIOVAN [Concomitant]
     Route: 048
  5. AMARYL [Concomitant]
     Route: 048

REACTIONS (2)
  - Blood creatine phosphokinase increased [Not Recovered/Not Resolved]
  - Muscle spasms [Unknown]
